FAERS Safety Report 5220640-X (Version None)
Quarter: 2007Q1

REPORT INFORMATION
  Report Type: 
  Country: None (occurrence: None)
  Receive Date: 20070125
  Receipt Date: 20070125
  Transmission Date: 20070707
  Serious: Yes (Hospitalization)
  Sender: FDA-Public Use
  Company Number: None

PATIENT
  Sex: Female
  Weight: 58.9676 kg

DRUGS (4)
  1. FOSINOPRIL SODIUM [Suspect]
     Dosage: DOSE CHANGED FROM 10 MG TO 40 MG PO QD
     Route: 048
  2. WELLBUTRIN [Concomitant]
  3. FOSAMAX [Concomitant]
  4. VERAPAMIL [Concomitant]

REACTIONS (3)
  - SPEECH DISORDER [None]
  - SWELLING FACE [None]
  - SWOLLEN TONGUE [None]
